FAERS Safety Report 5485383-6 (Version None)
Quarter: 2007Q4

REPORT INFORMATION
  Report Type: 
  Country: None (occurrence: None)
  Receive Date: 20071002
  Receipt Date: 20070122
  Transmission Date: 20080405
  Serious: No
  Sender: FDA-Public Use
  Company Number: 2007006821

PATIENT
  Age: 36 Year
  Sex: Male
  Weight: 65.7716 kg

DRUGS (1)
  1. DEPO-TESTOSTERONE [Suspect]
     Indication: HYPOGONADISM
     Dosage: 200 MG (200 MG, 1 IN 2 WK), INTRAMUSCULAR
     Route: 030

REACTIONS (2)
  - DYSGEUSIA [None]
  - HYPOAESTHESIA ORAL [None]
